FAERS Safety Report 8299625-5 (Version None)
Quarter: 2012Q2

REPORT INFORMATION
  Report Type: 
  Country: None (occurrence: None)
  Receive Date: 20120419
  Receipt Date: 20120410
  Transmission Date: 20120825
  Serious: Yes (Hospitalization, Other)
  Sender: FDA-Public Use
  Company Number: FR-GLAXOSMITHKLINE-B0790735A

PATIENT
  Sex: Female

DRUGS (10)
  1. DEPAKOTE [Concomitant]
     Indication: PSYCHOTIC DISORDER
     Dosage: 500UNIT THREE TIMES PER DAY
     Route: 048
  2. OXAZEPAM [Concomitant]
     Indication: PSYCHOTIC DISORDER
     Dosage: 50UNIT THREE TIMES PER DAY
     Route: 048
  3. ARIXTRA [Suspect]
     Indication: DEEP VEIN THROMBOSIS
     Dosage: 7.5MG PER DAY
     Route: 058
     Dates: start: 20120305, end: 20120310
  4. ZOLPIDEM TARTRATE [Concomitant]
     Indication: PSYCHOTIC DISORDER
     Dosage: 10MG PER DAY
     Route: 048
  5. SULFARLEM [Concomitant]
     Route: 048
  6. PAROXETINE HYDROCHLORIDE [Concomitant]
     Indication: PSYCHOTIC DISORDER
  7. ZOLOFT [Concomitant]
     Dosage: 50UNIT THREE TIMES PER DAY
     Route: 048
  8. ASPIRIN [Concomitant]
     Indication: CEREBROVASCULAR ACCIDENT
     Dosage: 75MG PER DAY
     Route: 048
  9. RISPERDAL [Concomitant]
     Indication: PSYCHOTIC DISORDER
     Dosage: 4MG PER DAY
     Route: 048
  10. POLYETHYLENE GLYCOL [Concomitant]
     Route: 048

REACTIONS (3)
  - MUSCLE HAEMORRHAGE [None]
  - OFF LABEL USE [None]
  - SKIN LESION [None]
